FAERS Safety Report 20110233 (Version 2)
Quarter: 2021Q4

REPORT INFORMATION
  Report Type: Report from Study
  Country: PL (occurrence: PL)
  Receive Date: 20211124
  Receipt Date: 20211130
  Transmission Date: 20220303
  Serious: Yes (Life-Threatening, Other)
  Sender: FDA-Public Use
  Company Number: PL-PFIZER INC-202101646777

PATIENT
  Age: 71 Year
  Sex: Male
  Weight: 72 kg

DRUGS (8)
  1. TALAZOPARIB [Suspect]
     Active Substance: TALAZOPARIB
     Indication: Prostate cancer metastatic
     Dosage: UNK, DAILY
     Route: 048
     Dates: start: 20210125, end: 20211122
  2. ENZALUTAMIDE [Suspect]
     Active Substance: ENZALUTAMIDE
     Indication: Prostate cancer metastatic
     Dosage: 160 MG, DAILY
     Route: 048
     Dates: start: 20210125, end: 20211122
  3. BISOPROLOL [Concomitant]
     Active Substance: BISOPROLOL
     Indication: Hypertension
     Dosage: 5 MG, QD
     Route: 048
     Dates: start: 2005
  4. CO AMLESSA [Concomitant]
     Indication: Hypertension
     Dosage: [PERINDOPRIL ERBUMINE 8 MG]/[ AMLODIPINE BESILATE 5 MG]/[ INDAPAMIDE 2.5 MG], QD
     Route: 048
     Dates: start: 2005
  5. ASPANGIN [Concomitant]
     Indication: Prophylaxis
     Dosage: 1 DF, QD
     Route: 048
     Dates: start: 2005
  6. GLUCOPHAGE [Concomitant]
     Active Substance: METFORMIN HYDROCHLORIDE
     Indication: Hyperglycaemia
     Dosage: 1000 MG, QD
     Route: 048
     Dates: start: 20210323
  7. ALLOPURINOL [Concomitant]
     Active Substance: ALLOPURINOL
     Indication: Hyperuricaemia
     Dosage: 100 MG, QD
     Route: 048
     Dates: start: 20210406
  8. POTASSIUM CHLORIDE [Concomitant]
     Active Substance: POTASSIUM CHLORIDE
     Indication: Prophylaxis
     Dosage: 600 MG, 1X/DAY
     Route: 048
     Dates: start: 20210208

REACTIONS (1)
  - Bile duct stone [Unknown]

NARRATIVE: CASE EVENT DATE: 20211122
